FAERS Safety Report 8288257-0 (Version None)
Quarter: 2012Q2

REPORT INFORMATION
  Report Type: 
  Country: None (occurrence: None)
  Receive Date: 20120416
  Receipt Date: 20120201
  Transmission Date: 20120825
  Serious: No
  Sender: FDA-Public Use
  Company Number: US-ELI_LILLY_AND_COMPANY-US201112001406

PATIENT
  Sex: Female

DRUGS (3)
  1. FORTEO [Suspect]
     Dosage: 20 UG, QD
     Route: 058
  2. FORTEO [Suspect]
     Indication: OSTEOPOROSIS
     Dosage: 20 UG, QD
     Route: 058
     Dates: start: 20110722
  3. FORTEO [Suspect]
     Dosage: 20 UG, QD
     Route: 058

REACTIONS (9)
  - ARTHRITIS [None]
  - INSOMNIA [None]
  - GAIT DISTURBANCE [None]
  - PAIN [None]
  - VISUAL IMPAIRMENT [None]
  - ARTHRALGIA [None]
  - RETINAL INJURY [None]
  - WRONG TECHNIQUE IN DRUG USAGE PROCESS [None]
  - DRUG DOSE OMISSION [None]
